FAERS Safety Report 21965692 (Version 3)
Quarter: 2023Q4

REPORT INFORMATION
  Report Type: Spontaneous
  Country: DE (occurrence: DE)
  Receive Date: 20230208
  Receipt Date: 20231026
  Transmission Date: 20240110
  Serious: Yes (Hospitalization, Other)
  Sender: FDA-Public Use
  Company Number: DE-002147023-NVSC2023DE024995

PATIENT
  Age: 75 Year
  Sex: Female

DRUGS (8)
  1. TAFINLAR [Suspect]
     Active Substance: DABRAFENIB MESYLATE
     Indication: Non-small cell lung cancer
     Dosage: 2 DOSAGE FORM, BID (2-0-2 MORNING AND EVENING, STRENGTH: 75 MG)
     Route: 065
     Dates: start: 202104, end: 20230126
  2. TAFINLAR [Suspect]
     Active Substance: DABRAFENIB MESYLATE
     Dosage: 2 DOSAGE FORM, BID (TWICE TAFINLAR 50 MG EACH IN THE MORNING AND EVENING, STRENGTH 50 MG)
     Route: 065
     Dates: start: 2023, end: 20230831
  3. TAFINLAR [Suspect]
     Active Substance: DABRAFENIB MESYLATE
     Dosage: 2 DOSAGE FORM, BID (2-0-2 MORNING AND EVENING, STRENGTH: 50 MG)
     Route: 065
     Dates: start: 2023
  4. MEKINIST [Suspect]
     Active Substance: TRAMETINIB DIMETHYL SULFOXIDE
     Indication: Non-small cell lung cancer
     Dosage: 1 DOSAGE FORM, QD (1-0-0 EVENING)
     Route: 065
     Dates: start: 202104, end: 20230126
  5. MEKINIST [Suspect]
     Active Substance: TRAMETINIB DIMETHYL SULFOXIDE
     Dosage: 2 MG, QD
     Route: 065
     Dates: start: 2023, end: 20230831
  6. MEKINIST [Suspect]
     Active Substance: TRAMETINIB DIMETHYL SULFOXIDE
     Dosage: 1 DOSAGE FORM, QD
     Route: 065
     Dates: start: 2023
  7. MIRABEGRON [Concomitant]
     Active Substance: MIRABEGRON
     Indication: Urinary incontinence
     Dosage: UNK
     Route: 065
  8. METAMIZOLE [Concomitant]
     Active Substance: METAMIZOLE
     Indication: Back pain
     Dosage: UNK
     Route: 065

REACTIONS (10)
  - Diarrhoea [Unknown]
  - Pyrexia [Recovered/Resolved]
  - Bladder obstruction [Recovered/Resolved]
  - Urinary tract infection [Recovered/Resolved]
  - Fatigue [Not Recovered/Not Resolved]
  - Joint swelling [Not Recovered/Not Resolved]
  - Pyrexia [Not Recovered/Not Resolved]
  - Asthenia [Unknown]
  - Chills [Not Recovered/Not Resolved]
  - Erythema [Not Recovered/Not Resolved]

NARRATIVE: CASE EVENT DATE: 20220901
